FAERS Safety Report 9538967 (Version 1)
Quarter: 2013Q3

REPORT INFORMATION
  Report Type: Spontaneous
  Country: JP (occurrence: JP)
  Receive Date: 20130920
  Receipt Date: 20130920
  Transmission Date: 20140515
  Serious: Yes (Other)
  Sender: FDA-Public Use
  Company Number: JP-ASTELLAS-2013JP009655

PATIENT
  Sex: Female

DRUGS (1)
  1. VESICARE [Suspect]
     Dosage: 2.5 MG, UID/QD
     Route: 048
     Dates: start: 2007

REACTIONS (7)
  - Intentional drug misuse [Unknown]
  - Haematemesis [Recovering/Resolving]
  - Stomatitis [Recovering/Resolving]
  - Abdominal pain upper [Recovering/Resolving]
  - Oesophageal pain [Recovering/Resolving]
  - Pollakiuria [Recovering/Resolving]
  - Urinary retention [Recovering/Resolving]
